FAERS Safety Report 5546041-2 (Version None)
Quarter: 2007Q4

REPORT INFORMATION
  Report Type: 
  Country: None (occurrence: None)
  Receive Date: 20071211
  Receipt Date: 20070830
  Transmission Date: 20080405
  Serious: Yes (Hospitalization)
  Sender: FDA-Public Use
  Company Number: US-BRISTOL-MYERS SQUIBB COMPANY-13893813

PATIENT
  Age: 46 Year
  Sex: Female
  Weight: 113 kg

DRUGS (6)
  1. EMSAM [Suspect]
     Indication: ANXIETY
     Route: 062
  2. EMSAM [Suspect]
     Indication: DEPRESSION
     Route: 062
  3. METFORMIN HCL [Concomitant]
     Route: 048
  4. LISINOPRIL [Concomitant]
     Route: 048
  5. LYRICA [Concomitant]
     Route: 048
  6. TEMAZEPAM [Concomitant]

REACTIONS (4)
  - ASTHENIA [None]
  - INSOMNIA [None]
  - SOMNOLENCE [None]
  - SUICIDE ATTEMPT [None]
